FAERS Safety Report 25454940 (Version 1)
Quarter: 2025Q2

REPORT INFORMATION
  Report Type: Spontaneous
  Country: IT (occurrence: IT)
  Receive Date: 20250619
  Receipt Date: 20250619
  Transmission Date: 20250716
  Serious: Yes (Death, Other)
  Sender: RANBAXY
  Company Number: IT-SUN PHARMACEUTICAL INDUSTRIES INC-2025RR-512777

PATIENT
  Age: 83 Year
  Sex: Female

DRUGS (12)
  1. MELPHALAN [Suspect]
     Active Substance: MELPHALAN
     Indication: Chemotherapy
     Route: 065
     Dates: start: 201605, end: 201610
  2. MELPHALAN [Suspect]
     Active Substance: MELPHALAN
     Route: 065
  3. PREDNISONE [Suspect]
     Active Substance: PREDNISONE
     Indication: Chemotherapy
     Route: 065
     Dates: start: 201605, end: 201610
  4. PREDNISONE [Suspect]
     Active Substance: PREDNISONE
     Route: 065
  5. BORTEZOMIB [Suspect]
     Active Substance: BORTEZOMIB
     Indication: Chemotherapy
     Route: 065
     Dates: start: 201605, end: 201610
  6. LENALIDOMIDE [Suspect]
     Active Substance: LENALIDOMIDE
     Indication: Chemotherapy
     Route: 065
     Dates: start: 201701, end: 202009
  7. DEXAMETHASONE [Suspect]
     Active Substance: DEXAMETHASONE
     Indication: Chemotherapy
     Route: 065
     Dates: start: 201701, end: 202009
  8. DEXAMETHASONE [Suspect]
     Active Substance: DEXAMETHASONE
     Route: 065
     Dates: start: 202103
  9. ISATUXIMAB [Suspect]
     Active Substance: ISATUXIMAB
     Indication: Chemotherapy
     Route: 065
     Dates: start: 202103
  10. POMALIDOMIDE [Suspect]
     Active Substance: POMALIDOMIDE
     Indication: Chemotherapy
     Route: 065
     Dates: start: 202103
  11. CARFILZOMIB [Suspect]
     Active Substance: CARFILZOMIB
     Indication: Chemotherapy
     Route: 065
  12. CYCLOPHOSPHAMIDE [Suspect]
     Active Substance: CYCLOPHOSPHAMIDE
     Indication: Chemotherapy
     Route: 065

REACTIONS (3)
  - Condition aggravated [Fatal]
  - Neoplasm progression [Unknown]
  - Miliary pneumonia [Unknown]
